FAERS Safety Report 6188805-0 (Version None)
Quarter: 2009Q2

REPORT INFORMATION
  Report Type: 
  Country: None (occurrence: None)
  Receive Date: 20090513
  Receipt Date: 20090513
  Transmission Date: 20091009
  Serious: Yes (Other)
  Sender: FDA-Public Use
  Company Number: DE-PFIZER INC-2008156566

PATIENT
  Age: 70 Year

DRUGS (1)
  1. VIAGRA [Suspect]
     Indication: ERECTILE DYSFUNCTION
     Dosage: UNK
     Route: 048

REACTIONS (5)
  - FACE OEDEMA [None]
  - FLUSHING [None]
  - NERVOUSNESS [None]
  - VISION BLURRED [None]
  - VISUAL FIELD DEFECT [None]
